FAERS Safety Report 15573493 (Version 1)
Quarter: 2018Q4

REPORT INFORMATION
  Report Type: Spontaneous
  Country: GB (occurrence: GB)
  Receive Date: 20181101
  Receipt Date: 20181101
  Transmission Date: 20190205
  Serious: Yes (Life-Threatening, Hospitalization)
  Sender: FDA-Public Use
  Company Number: GB-TEVA-2018-GB-968813

PATIENT
  Age: 17 Year
  Sex: Female

DRUGS (4)
  1. IBUPROFEN. [Suspect]
     Active Substance: IBUPROFEN
     Indication: INTENTIONAL OVERDOSE
     Dosage: EMPTY PACKET OF AMOUNT EQUIVALENT TO 1.6MG WAS FOUND; AMOUNT ADMINISTERED NOT SPECIFIED
     Route: 065
  2. LORATADINE. [Suspect]
     Active Substance: LORATADINE
     Indication: INTENTIONAL OVERDOSE
     Dosage: EMPTY PACKET OF AMOUNT EQUIVALENT TO 150MG WAS FOUND; AMOUNT ADMINISTERED NOT SPECIFIED
     Route: 065
  3. VENLAFAXINE [Suspect]
     Active Substance: VENLAFAXINE HYDROCHLORIDE
     Indication: INTENTIONAL OVERDOSE
     Dosage: EMPTY PACKET OF AMOUNT EQUIVALENT TO 3.15G WAS FOUND; AMOUNT ADMINISTERED NOT SPECIFIED
     Route: 065
  4. PARACETAMOL [Suspect]
     Active Substance: ACETAMINOPHEN
     Indication: INTENTIONAL OVERDOSE
     Dosage: EMPTY PACKET OF AMOUNT EQUIVALENT TO 5.5G WAS FOUND; AMOUNT ADMINISTERED NOT SPECIFIED
     Route: 065

REACTIONS (4)
  - Acute kidney injury [Recovered/Resolved]
  - Unresponsive to stimuli [Recovered/Resolved]
  - Intentional overdose [Recovered/Resolved]
  - Serotonin syndrome [Recovered/Resolved]
